FAERS Safety Report 7543290-9 (Version None)
Quarter: 2011Q2

REPORT INFORMATION
  Report Type: 
  Country: None (occurrence: None)
  Receive Date: 20110613
  Receipt Date: 20110601
  Transmission Date: 20111010
  Serious: Yes (Hospitalization)
  Sender: FDA-Public Use
  Company Number: FR-NAPPMUNDI-GBR-2011-0008354

PATIENT
  Sex: Male

DRUGS (6)
  1. OXYNORM, GELULE [Concomitant]
     Indication: PAIN
     Dosage: 10 MG, UNK
     Route: 048
     Dates: start: 20110504, end: 20110601
  2. NOCTAMIDE [Concomitant]
     Dosage: UNK
     Dates: start: 20060201
  3. BISACODYL [Concomitant]
     Indication: LAXATIVE SUPPORTIVE CARE
     Dosage: 5 MG, UNK
     Route: 048
  4. ESCITALOPRAM [Concomitant]
     Dosage: 10 MG, UNK
     Dates: start: 20060201
  5. BROMAZEPAM [Concomitant]
     Dosage: UNK
     Dates: start: 20060201
  6. OXY CR TAB [Suspect]
     Indication: PAIN
     Dosage: UNK
     Route: 048
     Dates: start: 20110504, end: 20110601

REACTIONS (1)
  - ELECTROCARDIOGRAM CHANGE [None]
